FAERS Safety Report 7051339-5 (Version None)
Quarter: 2010Q4

REPORT INFORMATION
  Report Type: 
  Country: None (occurrence: None)
  Receive Date: 20101018
  Receipt Date: 20101018
  Transmission Date: 20110411
  Serious: Yes (Congenital Anomaly)
  Sender: FDA-Public Use
  Company Number: None

PATIENT
  Sex: Female
  Weight: 86.1834 kg

DRUGS (1)
  1. BENZTROPINE MESYLATE [Suspect]
     Indication: TREMOR
     Dosage: 2 PILLS 2 TIMES DAILY
     Dates: start: 20100919

REACTIONS (5)
  - DYSPHAGIA [None]
  - GINGIVAL ERYTHEMA [None]
  - SWOLLEN TONGUE [None]
  - TONGUE ULCERATION [None]
  - VISION BLURRED [None]
